FAERS Safety Report 10983885 (Version 1)
Quarter: 2015Q2

REPORT INFORMATION
  Report Type: Spontaneous
  Country: TN (occurrence: None)
  Receive Date: 20150401
  Receipt Date: 20150401
  Transmission Date: 20150821
  Serious: Yes (Other)
  Sender: FDA-Public Use
  Company Number: NSR_02020_2015

PATIENT
  Age: 67 Year
  Sex: Male

DRUGS (3)
  1. CANDESARTAN (UNKNOWN) [Concomitant]
     Active Substance: CANDESARTAN
  2. ALLOPURINOL (ALLOPURINOL) [Suspect]
     Active Substance: ALLOPURINOL
     Indication: HYPERURICAEMIA
  3. ASPIRIN (UNKNOWN) [Concomitant]
     Active Substance: ASPIRIN

REACTIONS (1)
  - Drug reaction with eosinophilia and systemic symptoms [None]
